FAERS Safety Report 24027091 (Version 2)
Quarter: 2024Q3

REPORT INFORMATION
  Report Type: Spontaneous
  Country: US (occurrence: US)
  Receive Date: 20240628
  Receipt Date: 20240902
  Transmission Date: 20241016
  Serious: No
  Sender: ROCHE
  Company Number: US-ROCHE-3580008

PATIENT
  Age: 65 Year
  Sex: Female

DRUGS (1)
  1. ALECENSA [Suspect]
     Active Substance: ALECTINIB HYDROCHLORIDE
     Indication: Pericardial effusion
     Route: 048

REACTIONS (3)
  - Constipation [Unknown]
  - Fatigue [Unknown]
  - Off label use [Unknown]
